FAERS Safety Report 5155606-1 (Version None)
Quarter: 2006Q4

REPORT INFORMATION
  Report Type: 
  Country: None (occurrence: None)
  Receive Date: 20061113
  Receipt Date: 20061031
  Transmission Date: 20070319
  Serious: Yes (Death, Hospitalization)
  Sender: FDA-Public Use
  Company Number: 2006BI015824

PATIENT
  Age: 48 Year
  Sex: Male

DRUGS (1)
  1. AVONEX [Suspect]
     Indication: MULTIPLE SCLEROSIS
     Dosage: 30 UG; QW; IM
     Route: 030

REACTIONS (3)
  - DECUBITUS ULCER [None]
  - DEHYDRATION [None]
  - DEPRESSED LEVEL OF CONSCIOUSNESS [None]
